APPROVED DRUG PRODUCT: AMLODIPINE BESYLATE
Active Ingredient: AMLODIPINE BESYLATE
Strength: EQ 10MG BASE
Dosage Form/Route: TABLET;ORAL
Application: A077362 | Product #003
Applicant: GENPHARM INC
Approved: Jul 9, 2007 | RLD: No | RS: No | Type: DISCN